FAERS Safety Report 4644130-8 (Version None)
Quarter: 2005Q2

REPORT INFORMATION
  Report Type: 
  Country: None (occurrence: None)
  Receive Date: 20050425
  Receipt Date: 20050120
  Transmission Date: 20051028
  Serious: Yes (Other)
  Sender: FDA-Public Use
  Company Number: FR-GLAXOSMITHKLINE-B0365258A

PATIENT
  Age: 59 Year
  Sex: Male
  Weight: 115 kg

DRUGS (2)
  1. AUGMENTIN [Suspect]
     Dosage: 1G THREE TIMES PER DAY
     Route: 048
     Dates: start: 20041214, end: 20050104
  2. LAMALINE [Concomitant]
     Indication: PAIN
     Route: 065

REACTIONS (5)
  - ASTHENIA [None]
  - HEPATITIS [None]
  - JAUNDICE [None]
  - NAUSEA [None]
  - PRURITUS [None]
